FAERS Safety Report 22642432 (Version 1)
Quarter: 2023Q2

REPORT INFORMATION
  Report Type: Spontaneous
  Country: AT (occurrence: AT)
  Receive Date: 20230626
  Receipt Date: 20230626
  Transmission Date: 20230722
  Serious: Yes (Other)
  Sender: FDA-Public Use
  Company Number: AT-CELLTRION INC.-2023AT012597

PATIENT

DRUGS (3)
  1. RITUXIMAB [Suspect]
     Active Substance: RITUXIMAB
     Indication: Relapsing-remitting multiple sclerosis
     Dosage: 375 MG/M2, Q2WEEKS
     Route: 042
     Dates: start: 2013
  2. AZITHROMYCIN [Concomitant]
     Active Substance: AZITHROMYCIN
  3. CEFUROXIME [Concomitant]
     Active Substance: CEFUROXIME

REACTIONS (4)
  - COVID-19 [Unknown]
  - Giardiasis [Unknown]
  - Urinary tract infection [Unknown]
  - Intentional product use issue [Unknown]

NARRATIVE: CASE EVENT DATE: 20220101
